FAERS Safety Report 5212269-4 (Version None)
Quarter: 2007Q1

REPORT INFORMATION
  Report Type: 
  Country: None (occurrence: None)
  Receive Date: 20070118
  Receipt Date: 20070112
  Transmission Date: 20070707
  Serious: Yes (Other)
  Sender: FDA-Public Use
  Company Number: ES-BOEHRINGER INGELHEIM GMBH, GERMANY-2007-DE-00231GD

PATIENT
  Age: 4 Year
  Sex: Female

DRUGS (4)
  1. PARACETAMOL [Suspect]
  2. IBUPROFEN [Suspect]
  3. CLARITHROMYCIN [Suspect]
     Indication: ACUTE TONSILLITIS
  4. AMOXICILLIN/CLAVULANIC ACID [Suspect]

REACTIONS (1)
  - AGRANULOCYTOSIS [None]
